FAERS Safety Report 7131584-0 (Version None)
Quarter: 2010Q4

REPORT INFORMATION
  Report Type: 
  Country: None (occurrence: None)
  Receive Date: 20101201
  Receipt Date: 20101124
  Transmission Date: 20110411
  Serious: Yes (Other)
  Sender: FDA-Public Use
  Company Number: DK-BRACCO-000059

PATIENT
  Sex: Male

DRUGS (1)
  1. MULTIHANCE [Suspect]
     Indication: SCAN WITH CONTRAST
     Route: 042
     Dates: start: 20060321

REACTIONS (3)
  - DUPUYTREN'S CONTRACTURE [None]
  - ERYTHEMA [None]
  - SKIN ATROPHY [None]
